FAERS Safety Report 17160316 (Version 1)
Quarter: 2019Q4

REPORT INFORMATION
  Report Type: Spontaneous
  Country: FR (occurrence: FR)
  Receive Date: 20191216
  Receipt Date: 20191216
  Transmission Date: 20200122
  Serious: Yes (Life-Threatening, Other)
  Sender: FDA-Public Use
  Company Number: FR-PFIZER INC-2019538561

PATIENT
  Age: 44 Year
  Sex: Female
  Weight: 79.5 kg

DRUGS (5)
  1. LAMICTAL [Suspect]
     Active Substance: LAMOTRIGINE
     Dosage: 3000 MG, UNK
     Route: 048
     Dates: start: 20191121, end: 20191121
  2. VALIUM [Suspect]
     Active Substance: DIAZEPAM
     Dosage: 13 DF, UNK
     Route: 048
     Dates: start: 20191121, end: 20191121
  3. LOXAPAC [LOXAPINE SUCCINATE] [Suspect]
     Active Substance: LOXAPINE SUCCINATE
     Dosage: 500 MG, UNK
     Route: 048
     Dates: start: 20191121, end: 20191121
  4. QUETIAPINE. [Suspect]
     Active Substance: QUETIAPINE
     Dosage: 10 DF, UNK
     Route: 048
     Dates: start: 20191121, end: 20191121
  5. EFFEXOR [Suspect]
     Active Substance: VENLAFAXINE HYDROCHLORIDE
     Dosage: 1 DF, UNK
     Dates: start: 20191121, end: 20191121

REACTIONS (5)
  - Toxicity to various agents [Unknown]
  - Tachypnoea [Recovered/Resolved]
  - Hypotension [Recovered/Resolved]
  - Coma [Recovered/Resolved]
  - Hypothermia [Recovered/Resolved]

NARRATIVE: CASE EVENT DATE: 20191121
